FAERS Safety Report 25673562 (Version 1)
Quarter: 2025Q3

REPORT INFORMATION
  Report Type: Spontaneous
  Country: EU (occurrence: EU)
  Receive Date: 20250813
  Receipt Date: 20250813
  Transmission Date: 20251020
  Serious: Yes (Other)
  Sender: BOEHRINGER INGELHEIM
  Company Number: None

PATIENT
  Age: 70 Year
  Sex: Female

DRUGS (4)
  1. LINAGLIPTIN [Suspect]
     Active Substance: LINAGLIPTIN
     Indication: Type 2 diabetes mellitus
     Route: 048
     Dates: start: 20250313
  2. JARDIANCE [Suspect]
     Active Substance: EMPAGLIFLOZIN
     Indication: Product used for unknown indication
     Route: 048
     Dates: start: 20240521
  3. REPAGLINIDA NORMON 2 mg COMPRIMIDOS EFG, 90 comprimidos [Concomitant]
     Indication: Product used for unknown indication
     Dosage: REPAGLINIDE 2 MG. DAILY REGIMEN: 1-2-2
     Route: 048
     Dates: start: 20160922
  4. LEVETIRACETAM NORMON 500 mg COMPRIMIDOS RECUBIERTOS CON PELICULA EFG, [Concomitant]
     Indication: Product used for unknown indication
     Route: 048
     Dates: start: 20220914

REACTIONS (1)
  - Pancreatitis [Recovering/Resolving]

NARRATIVE: CASE EVENT DATE: 20250601
